FAERS Safety Report 8175033-2 (Version None)
Quarter: 2012Q1

REPORT INFORMATION
  Report Type: 
  Country: None (occurrence: None)
  Receive Date: 20120229
  Receipt Date: 20120221
  Transmission Date: 20120608
  Serious: Yes (Other)
  Sender: FDA-Public Use
  Company Number: PHHY2012JP015183

PATIENT
  Age: 25 Year
  Sex: Male

DRUGS (5)
  1. AZATHIOPRINE [Suspect]
     Indication: IMMUNOSUPPRESSION
  2. CYCLOSPORINE [Suspect]
     Indication: IMMUNOSUPPRESSION
     Dosage: 200 MG, QD
  3. CYCLOSPORINE [Suspect]
     Dosage: 150 MG, QD
  4. METHYLPREDNISOLONE [Suspect]
     Indication: IMMUNOSUPPRESSION
     Dosage: 8 MG, QD
  5. GUSPERIMUS [Suspect]
     Indication: IMMUNOSUPPRESSION

REACTIONS (2)
  - TRANSITIONAL CELL CARCINOMA [None]
  - HAEMATURIA [None]
